FAERS Safety Report 9005486 (Version 1)
Quarter: 2013Q1

REPORT INFORMATION
  Report Type: Report from Study
  Country: US (occurrence: US)
  Receive Date: 20130109
  Receipt Date: 20130109
  Transmission Date: 20140127
  Serious: Yes (Other)
  Sender: FDA-Public Use
  Company Number: US-ABBOTT-13P-163-1031802-00

PATIENT
  Age: 51 None
  Sex: Female
  Weight: 95.34 kg

DRUGS (10)
  1. HUMIRA PEN [Suspect]
     Indication: SPONDYLITIS
     Dates: start: 2011, end: 2012
  2. HUMIRA PEN [Suspect]
     Dates: end: 201209
  3. SYNTHROID [Concomitant]
     Indication: HYPOTHYROIDISM
  4. TOPROL XL [Concomitant]
     Indication: HYPERTENSION
  5. MAXIDE [Concomitant]
     Indication: HYPERTENSION
  6. ACIPHEX [Concomitant]
     Indication: GASTRITIS
  7. CYMBALTA [Concomitant]
     Indication: FIBROMYALGIA
  8. CELEXA [Concomitant]
     Indication: FIBROMYALGIA
  9. ULTRAM ER [Concomitant]
     Indication: PAIN
  10. VITAMIN B 12 [Concomitant]
     Indication: PRODUCT USED FOR UNKNOWN INDICATION

REACTIONS (13)
  - Carpal tunnel syndrome [Unknown]
  - Carpal tunnel syndrome [Unknown]
  - Red blood cell sedimentation rate increased [Recovered/Resolved]
  - C-reactive protein increased [Recovered/Resolved]
  - Pain [Recovering/Resolving]
  - Nasopharyngitis [Not Recovered/Not Resolved]
  - Pain [Not Recovered/Not Resolved]
  - Gastrointestinal bacterial infection [Not Recovered/Not Resolved]
  - Malabsorption [Not Recovered/Not Resolved]
  - Off label use [Not Recovered/Not Resolved]
  - Therapeutic response unexpected [Not Recovered/Not Resolved]
  - Viral infection [Not Recovered/Not Resolved]
  - Colitis ulcerative [Not Recovered/Not Resolved]
